FAERS Safety Report 6601359-7 (Version None)
Quarter: 2010Q1

REPORT INFORMATION
  Report Type: 
  Country: None (occurrence: None)
  Receive Date: 20100225
  Receipt Date: 20091228
  Transmission Date: 20100710
  Serious: Yes (Other)
  Sender: FDA-Public Use
  Company Number: FR-PFIZER INC-2010023386

PATIENT
  Age: 65 Year
  Sex: Female

DRUGS (7)
  1. ATARAX [Suspect]
     Dosage: 50 MG
     Route: 048
     Dates: start: 20091001, end: 20091001
  2. ATARAX [Suspect]
     Dosage: 37.5 MG
     Route: 048
     Dates: start: 20090101
  3. DIFFU K [Concomitant]
     Indication: HYPOKALAEMIA
     Route: 048
  4. AVLOCARDYL [Concomitant]
     Indication: TACHYCARDIA
     Route: 048
  5. AVLOCARDYL [Concomitant]
     Indication: PALPITATIONS
  6. CERVOXAN [Concomitant]
     Route: 048
  7. MAGNESIUM [Concomitant]
     Route: 048

REACTIONS (2)
  - CONFUSIONAL STATE [None]
  - PALPITATIONS [None]
